FAERS Safety Report 12284432 (Version 3)
Quarter: 2016Q3

REPORT INFORMATION
  Report Type: Report from Study
  Country: US (occurrence: US)
  Receive Date: 20160420
  Receipt Date: 20160803
  Transmission Date: 20161109
  Serious: No
  Sender: FDA-Public Use
  Company Number: PHEH2016US009082

PATIENT
  Age: 33 Year
  Sex: Male

DRUGS (1)
  1. COSENTYX [Suspect]
     Active Substance: SECUKINUMAB
     Indication: PSORIASIS
     Dosage: 300 MG, QW
     Route: 058
     Dates: start: 20160411

REACTIONS (2)
  - Incorrect dose administered by device [Unknown]
  - Device breakage [Unknown]

NARRATIVE: CASE EVENT DATE: 20160411
